APPROVED DRUG PRODUCT: TIKOSYN
Active Ingredient: DOFETILIDE
Strength: 0.25MG
Dosage Form/Route: CAPSULE;ORAL
Application: N020931 | Product #002 | TE Code: AB
Applicant: PFIZER PHARMACEUTICALS PRODUCTION CORP LTD
Approved: Oct 1, 1999 | RLD: Yes | RS: No | Type: RX